FAERS Safety Report 19245909 (Version 1)
Quarter: 2021Q2

REPORT INFORMATION
  Report Type: Spontaneous
  Country: US (occurrence: US)
  Receive Date: 20210512
  Receipt Date: 20210512
  Transmission Date: 20210717
  Serious: No
  Sender: FDA-Public Use
  Company Number: US-TOLMAR, INC.-21US026768

PATIENT
  Age: 65 Year
  Sex: Female
  Weight: 49.89 kg

DRUGS (2)
  1. CALCIPOTRIENE. [Suspect]
     Active Substance: CALCIPOTRIENE
     Indication: PSORIASIS
     Dosage: UNK, BID
     Route: 061
     Dates: start: 20210401
  2. CALCIPOTRIENE. [Suspect]
     Active Substance: CALCIPOTRIENE
     Dosage: UNK UNK, QD
     Route: 061
     Dates: start: 202104

REACTIONS (1)
  - Sleep disorder [Recovering/Resolving]

NARRATIVE: CASE EVENT DATE: 202104
